FAERS Safety Report 8025834-6 (Version None)
Quarter: 2012Q1

REPORT INFORMATION
  Report Type: 
  Country: None (occurrence: None)
  Receive Date: 20120105
  Receipt Date: 20110407
  Transmission Date: 20120608
  Serious: No
  Sender: FDA-Public Use
  Company Number: US-ABBOTT-11P-163-0717857-00

PATIENT
  Sex: Female
  Weight: 104.42 kg

DRUGS (11)
  1. SYNTHROID [Suspect]
     Dates: end: 20110201
  2. ALLEGRA [Concomitant]
     Indication: HYPERSENSITIVITY
  3. ACCUPRIL [Concomitant]
     Indication: HYPERTENSION
  4. ASPIRIN [Concomitant]
     Indication: PRODUCT USED FOR UNKNOWN INDICATION
  5. DICLOFENAC SODIUM [Suspect]
     Indication: PRODUCT USED FOR UNKNOWN INDICATION
  6. LIPITOR [Concomitant]
     Indication: BLOOD CHOLESTEROL INCREASED
  7. DYAZIDE [Concomitant]
     Indication: FLUID RETENTION
  8. SYNTHROID [Suspect]
     Indication: HORMONE REPLACEMENT THERAPY
     Dates: start: 20110201
  9. NASACORT [Concomitant]
     Indication: HYPERSENSITIVITY
     Route: 045
  10. DYAZIDE [Concomitant]
     Indication: HYPERTENSION
  11. VITAMIN D [Concomitant]
     Indication: PRODUCT USED FOR UNKNOWN INDICATION

REACTIONS (2)
  - PRURITUS [None]
  - NASAL CONGESTION [None]
